FAERS Safety Report 7462461-3 (Version None)
Quarter: 2011Q2

REPORT INFORMATION
  Report Type: 
  Country: None (occurrence: None)
  Receive Date: 20110506
  Receipt Date: 20101217
  Transmission Date: 20111010
  Serious: No
  Sender: FDA-Public Use
  Company Number: US-BAYER-2010-008477

PATIENT
  Age: 19 Year
  Sex: Female

DRUGS (2)
  1. MUCINEX [Concomitant]
  2. AVELOX [Suspect]
     Indication: SINUSITIS
     Dosage: 400 MG, QD
     Route: 048
     Dates: start: 20101201

REACTIONS (3)
  - HEADACHE [None]
  - DIZZINESS [None]
  - NAUSEA [None]
